FAERS Safety Report 9173917 (Version 2)
Quarter: 2013Q2

REPORT INFORMATION
  Report Type: Spontaneous
  Country: US (occurrence: US)
  Receive Date: 20130320
  Receipt Date: 20130403
  Transmission Date: 20140414
  Serious: Yes (Hospitalization)
  Sender: FDA-Public Use
  Company Number: US-B.I. PHARMACEUTICALS,INC./RIDGEFIELD-2013-BI-06499BP

PATIENT
  Age: 63 Year
  Sex: Female
  Weight: 92 kg

DRUGS (3)
  1. MIRAPEX [Suspect]
     Indication: RESTLESS LEGS SYNDROME
     Dosage: 1.5 MG
     Route: 048
     Dates: start: 20091116, end: 201208
  2. XANAX [Concomitant]
     Indication: ANXIETY
     Dosage: 3 MG
     Route: 048
     Dates: start: 2005
  3. LITHIUM [Concomitant]
     Indication: BIPOLAR DISORDER
     Dates: start: 1998, end: 201207

REACTIONS (13)
  - Loss of consciousness [Recovered/Resolved]
  - Toxicity to various agents [Recovered/Resolved]
  - Hallucination [Recovered/Resolved]
  - Fall [Recovered/Resolved]
  - Dysgraphia [Recovered/Resolved]
  - Judgement impaired [Recovered/Resolved]
  - Victim of sexual abuse [Recovered/Resolved]
  - Restless legs syndrome [Not Recovered/Not Resolved]
  - Hypertension [Recovered/Resolved]
  - Hyperlipidaemia [Recovered/Resolved]
  - Bipolar disorder [Recovered/Resolved]
  - Muscular weakness [Recovered/Resolved]
  - Depression [Recovered/Resolved]
